FAERS Safety Report 7750838-8 (Version None)
Quarter: 2011Q3

REPORT INFORMATION
  Report Type: 
  Country: None (occurrence: None)
  Receive Date: 20110914
  Receipt Date: 20110907
  Transmission Date: 20111222
  Serious: Yes (Other)
  Sender: FDA-Public Use
  Company Number: US-JNJFOC-20110904535

PATIENT
  Sex: Female
  Weight: 19.1 kg

DRUGS (9)
  1. MESALAMINE [Concomitant]
     Route: 054
  2. PEPTAMEN [Concomitant]
  3. PREDNISONE [Concomitant]
  4. PREVACID [Concomitant]
  5. REMICADE [Suspect]
     Indication: INFLAMMATORY BOWEL DISEASE
     Route: 042
     Dates: start: 20110728
  6. REMICADE [Suspect]
     Route: 042
     Dates: start: 20110830
  7. FOLIC ACID [Concomitant]
  8. VITAMIN D [Concomitant]
  9. MULTI-VITAMINS [Concomitant]

REACTIONS (1)
  - INFUSION RELATED REACTION [None]
